FAERS Safety Report 15726962 (Version 2)
Quarter: 2019Q1

REPORT INFORMATION
  Report Type: Report from Study
  Country: US (occurrence: US)
  Receive Date: 20181217
  Receipt Date: 20190208
  Transmission Date: 20190417
  Serious: Yes (Hospitalization, Other)
  Sender: FDA-Public Use
  Company Number: US-009507513-1812USA006928

PATIENT
  Age: 66 Year
  Sex: Male

DRUGS (2)
  1. AMLODIPINE [Concomitant]
     Active Substance: AMLODIPINE BESYLATE
     Dosage: UNK
  2. KEYTRUDA [Suspect]
     Active Substance: PEMBROLIZUMAB
     Indication: PANCREATIC CARCINOMA
     Dosage: 200 MG EVERY 3 WEEKS
     Route: 042
     Dates: start: 20181123

REACTIONS (12)
  - Gastric haemorrhage [Not Recovered/Not Resolved]
  - Haemoglobin decreased [Not Recovered/Not Resolved]
  - Loss of consciousness [Unknown]
  - Product use in unapproved indication [Unknown]
  - Vomiting [Unknown]
  - Loss of consciousness [Unknown]
  - Blood count abnormal [Not Recovered/Not Resolved]
  - Road traffic accident [Unknown]
  - Impaired driving ability [Unknown]
  - Cerebrovascular accident [Not Recovered/Not Resolved]
  - Gastrointestinal haemorrhage [Not Recovered/Not Resolved]
  - Myocardial infarction [Not Recovered/Not Resolved]

NARRATIVE: CASE EVENT DATE: 20181123
